FAERS Safety Report 8051227-1 (Version None)
Quarter: 2012Q1

REPORT INFORMATION
  Report Type: 
  Country: None (occurrence: None)
  Receive Date: 20120117
  Receipt Date: 20120106
  Transmission Date: 20120608
  Serious: Yes (Other)
  Sender: FDA-Public Use
  Company Number: RE-ASTRAZENECA-2012SE01974

PATIENT
  Age: 43 Year
  Sex: Female

DRUGS (4)
  1. CRESTOR [Suspect]
     Indication: DYSLIPIDAEMIA
     Route: 048
     Dates: start: 20111101, end: 20111101
  2. SECTRAL [Concomitant]
     Route: 048
  3. INSULINOTHERAPY [Concomitant]
     Route: 058
  4. METFORMIN HCL [Concomitant]
     Route: 048

REACTIONS (2)
  - PYREXIA [None]
  - MYALGIA [None]
